FAERS Safety Report 10179365 (Version 5)
Quarter: 2016Q2

REPORT INFORMATION
  Report Type: Spontaneous
  Country: JP (occurrence: JP)
  Receive Date: 20140519
  Receipt Date: 20160620
  Transmission Date: 20160815
  Serious: Yes (Other)
  Sender: FDA-Public Use
  Company Number: JP-SA-2014SA063188

PATIENT
  Age: 59 Year
  Sex: Male

DRUGS (2)
  1. DOCETAXEL. [Suspect]
     Active Substance: DOCETAXEL
     Indication: SKIN ANGIOSARCOMA
     Dosage: RECEIVED 5 CYCLES: TOTAL DOSE: 375 MG/M2; 1 VIAL PREPARED WITH ATTACHED SOLUTION CONTAINING ETHANOL.
     Route: 065
  2. DOCETAXEL. [Suspect]
     Active Substance: DOCETAXEL
     Indication: SKIN ANGIOSARCOMA
     Dosage: RECEIVED 5 CYCLES: TOTAL DOSE: 375 MG/M2; 1 VIAL PREPARED WITH ATTACHED SOLUTION CONTAINING ETHANOL.
     Route: 065

REACTIONS (7)
  - Scleroderma [Recovered/Resolved]
  - Oedema peripheral [Recovering/Resolving]
  - Skin fibrosis [Unknown]
  - Localised oedema [Recovering/Resolving]
  - Scrotal oedema [Unknown]
  - Hyaluronic acid decreased [Unknown]
  - Pleural effusion [Unknown]

NARRATIVE: CASE EVENT DATE: 201212
